FAERS Safety Report 17021877 (Version 1)
Quarter: 2019Q4

REPORT INFORMATION
  Report Type: Spontaneous
  Country: CZ (occurrence: CZ)
  Receive Date: 20191112
  Receipt Date: 20191112
  Transmission Date: 20200122
  Serious: Yes (Other)
  Sender: FDA-Public Use
  Company Number: CZ-ROCHE-2466968

PATIENT
  Age: 61 Year
  Sex: Male

DRUGS (15)
  1. RITUXIMAB. [Suspect]
     Active Substance: RITUXIMAB
     Dosage: MAINTENANCE TREATMENT
     Route: 065
     Dates: start: 20111001, end: 201209
  2. ARA-C [Suspect]
     Active Substance: CYTARABINE
     Indication: MANTLE CELL LYMPHOMA
     Route: 065
     Dates: start: 201006
  3. MELPHALAN. [Suspect]
     Active Substance: MELPHALAN
     Indication: MANTLE CELL LYMPHOMA
     Route: 065
     Dates: start: 201006
  4. CYCLOPHOSPHAMIDE. [Suspect]
     Active Substance: CYCLOPHOSPHAMIDE
     Indication: MANTLE CELL LYMPHOMA
     Dosage: 8 CYCLES R-CHOP
     Route: 065
     Dates: start: 20100601
  5. VINCRISTINE [Suspect]
     Active Substance: VINCRISTINE
     Indication: MANTLE CELL LYMPHOMA
     Route: 065
     Dates: start: 201006
  6. METHOTREXATE. [Suspect]
     Active Substance: METHOTREXATE
     Indication: NERVOUS SYSTEM DISORDER
  7. RITUXIMAB. [Suspect]
     Active Substance: RITUXIMAB
     Dosage: SECOND LINE THERAPY
     Route: 065
     Dates: start: 20150801
  8. METHOTREXATE. [Suspect]
     Active Substance: METHOTREXATE
     Indication: MANTLE CELL LYMPHOMA
     Route: 037
     Dates: start: 201006
  9. ETOPOSIDE. [Suspect]
     Active Substance: ETOPOSIDE
     Indication: MANTLE CELL LYMPHOMA
     Route: 065
     Dates: start: 201006
  10. RITUXIMAB. [Suspect]
     Active Substance: RITUXIMAB
     Indication: MANTLE CELL LYMPHOMA
     Dosage: 8 CYCLES R-CHOP IN FIRST LINE THERAPY
     Route: 065
     Dates: start: 20100601
  11. BENDAMUSTINE [Suspect]
     Active Substance: BENDAMUSTINE
     Indication: MANTLE CELL LYMPHOMA
     Route: 065
     Dates: start: 201006
  12. PREDNISOLONE. [Suspect]
     Active Substance: PREDNISOLONE
     Indication: MANTLE CELL LYMPHOMA
     Dosage: 8 CYCLES R-CHOP
     Route: 065
     Dates: start: 20100601
  13. DOXORUBICIN [Suspect]
     Active Substance: DOXORUBICIN
     Indication: MANTLE CELL LYMPHOMA
     Route: 065
     Dates: start: 201006
  14. CARMUSTINE. [Suspect]
     Active Substance: CARMUSTINE
     Indication: MANTLE CELL LYMPHOMA
     Route: 065
     Dates: start: 201006
  15. IBRUTINIB [Concomitant]
     Active Substance: IBRUTINIB
     Route: 065
     Dates: start: 201703

REACTIONS (7)
  - Gallstone ileus [Unknown]
  - Pneumonia [Unknown]
  - Off label use [Unknown]
  - Bronchitis [Unknown]
  - Intentional product use issue [Unknown]
  - Pleurisy [Unknown]
  - Cholelithiasis [Unknown]
